FAERS Safety Report 9066449 (Version 1)
Quarter: 2013Q1

REPORT INFORMATION
  Report Type: Report from Study
  Country: US (occurrence: US)
  Receive Date: 20130131
  Receipt Date: 20130131
  Transmission Date: 20140127
  Serious: No
  Sender: FDA-Public Use
  Company Number: US-ABBOTT-12P-163-1016518-00

PATIENT
  Age: 47 Year
  Sex: Female

DRUGS (7)
  1. HUMIRA [Suspect]
     Indication: ANKYLOSING SPONDYLITIS
     Dates: start: 201111
  2. PIROXICAM [Concomitant]
     Indication: ANKYLOSING SPONDYLITIS
     Dosage: 20MG DAILY
  3. PIROXICAM [Concomitant]
     Indication: PAIN MANAGEMENT
  4. LEXAPRO [Concomitant]
     Indication: ANKYLOSING SPONDYLITIS
     Dosage: 10MG DAILY
  5. LEXAPRO [Concomitant]
     Indication: PAIN MANAGEMENT
  6. GABAPENTIN [Concomitant]
     Indication: ANKYLOSING SPONDYLITIS
     Dosage: AT BEDTIME
  7. GABAPENTIN [Concomitant]
     Indication: PAIN MANAGEMENT

REACTIONS (4)
  - Injection site pain [Not Recovered/Not Resolved]
  - Injection site bruising [Not Recovered/Not Resolved]
  - Injection site haemorrhage [Not Recovered/Not Resolved]
  - Injection site erythema [Not Recovered/Not Resolved]
